FAERS Safety Report 9075434 (Version 1)
Quarter: 2013Q1

REPORT INFORMATION
  Report Type: Report from Study
  Country: US (occurrence: US)
  Receive Date: 20130129
  Receipt Date: 20130129
  Transmission Date: 20140127
  Serious: No
  Sender: FDA-Public Use
  Company Number: US-ABBOTT-12P-163-0943612-00

PATIENT
  Age: 55 None
  Sex: Female
  Weight: 74.91 kg

DRUGS (5)
  1. HUMIRA 40 MG/0.8 ML PEN [Suspect]
     Indication: RHEUMATOID ARTHRITIS
     Dates: start: 2011
  2. SAVELLA [Concomitant]
     Indication: RHEUMATOID ARTHRITIS
  3. HYDROCODONE/ACETAMINOPHEN [Concomitant]
     Indication: PAIN
  4. ESTROGEN [Concomitant]
     Indication: HORMONE REPLACEMENT THERAPY
  5. AMBIEN [Concomitant]
     Indication: INSOMNIA

REACTIONS (6)
  - Device malfunction [Not Recovered/Not Resolved]
  - Laceration [Not Recovered/Not Resolved]
  - Injection site pain [Not Recovered/Not Resolved]
  - Injection site pain [Not Recovered/Not Resolved]
  - Injection site bruising [Not Recovered/Not Resolved]
  - Drug dose omission [Unknown]
